FAERS Safety Report 7006770-0 (Version None)
Quarter: 2010Q3

REPORT INFORMATION
  Report Type: 
  Country: None (occurrence: None)
  Receive Date: 20100922
  Receipt Date: 20100914
  Transmission Date: 20110219
  Serious: No
  Sender: FDA-Public Use
  Company Number: US-BIOGENIDEC-2010BI032020

PATIENT
  Age: 60 Year
  Sex: Male

DRUGS (1)
  1. TYSABRI [Suspect]
     Indication: MULTIPLE SCLEROSIS
     Route: 042
     Dates: start: 20080418

REACTIONS (8)
  - ASTHENIA [None]
  - FALL [None]
  - FATIGUE [None]
  - HIP DEFORMITY [None]
  - MOBILITY DECREASED [None]
  - MUSCLE DISORDER [None]
  - MUSCULOSKELETAL DISORDER [None]
  - NERVE COMPRESSION [None]
